FAERS Safety Report 13917162 (Version 6)
Quarter: 2017Q4

REPORT INFORMATION
  Report Type: Spontaneous
  Country: US (occurrence: US)
  Receive Date: 20170829
  Receipt Date: 20171201
  Transmission Date: 20180320
  Serious: Yes (Hospitalization, Other)
  Sender: FDA-Public Use
  Company Number: US-PFIZER INC-2017369333

PATIENT
  Age: 61 Year
  Sex: Female
  Weight: 79.38 kg

DRUGS (2)
  1. IBRANCE [Suspect]
     Active Substance: PALBOCICLIB
     Dosage: 100 MG, CYCLIC (21 DAYS AND OFF FOR 5 DAYS)
     Route: 048
     Dates: start: 201705, end: 201710
  2. IBRANCE [Suspect]
     Active Substance: PALBOCICLIB
     Indication: NEOPLASM MALIGNANT
     Dosage: 100 MG, ONCE DAILY
     Dates: start: 2017

REACTIONS (32)
  - Eye irritation [Recovered/Resolved]
  - Muscular weakness [Not Recovered/Not Resolved]
  - Loss of consciousness [Recovered/Resolved]
  - Feeling abnormal [Not Recovered/Not Resolved]
  - Nasal dryness [Not Recovered/Not Resolved]
  - Chest discomfort [Not Recovered/Not Resolved]
  - Neoplasm progression [Unknown]
  - Gingival pain [Not Recovered/Not Resolved]
  - Flatulence [Not Recovered/Not Resolved]
  - Abdominal pain upper [Recovered/Resolved]
  - Fatigue [Not Recovered/Not Resolved]
  - Ocular hyperaemia [Recovered/Resolved]
  - Pain [Recovered/Resolved]
  - Abdominal pain [Recovered/Resolved]
  - Hot flush [Not Recovered/Not Resolved]
  - Skin tightness [Not Recovered/Not Resolved]
  - Dysgeusia [Unknown]
  - Product use in unapproved indication [Unknown]
  - Nail disorder [Not Recovered/Not Resolved]
  - Madarosis [Not Recovered/Not Resolved]
  - Hordeolum [Recovered/Resolved]
  - Headache [Recovered/Resolved]
  - Appetite disorder [Not Recovered/Not Resolved]
  - Tooth disorder [Not Recovered/Not Resolved]
  - Pulmonary oedema [Not Recovered/Not Resolved]
  - Epistaxis [Not Recovered/Not Resolved]
  - Asthenia [Not Recovered/Not Resolved]
  - Dyspnoea [Not Recovered/Not Resolved]
  - Toothache [Not Recovered/Not Resolved]
  - Nocturia [Not Recovered/Not Resolved]
  - Alopecia [Not Recovered/Not Resolved]
  - Weight fluctuation [Not Recovered/Not Resolved]

NARRATIVE: CASE EVENT DATE: 2017
